FAERS Safety Report 5269823-3 (Version None)
Quarter: 2007Q1

REPORT INFORMATION
  Report Type: 
  Country: None (occurrence: None)
  Receive Date: 20061218
  Receipt Date: 20060817
  Transmission Date: 20070707
  Serious: Yes (Hospitalization, Other)
  Sender: FDA-Public Use
  Company Number: US200608003640

PATIENT
  Age: 48 Year
  Sex: Female

DRUGS (11)
  1. HUMALOG [Suspect]
     Dosage: SEE IMAGE
     Dates: start: 20060701
  2. ALL OTHER THERAPEUTIC PRODUCTS [Concomitant]
  3. RAPAMUNE [Concomitant]
  4. FOSAMAX /ITA/(ALENDRONATE SODIUM) [Concomitant]
  5. DIOVAN [Concomitant]
  6. FUROSEMIDE [Concomitant]
  7. FERROUS SULFATE TAB [Concomitant]
  8. GLUCAGON (FLUCAGON) [Concomitant]
  9. PROGRAF /USA/(TACROLIMUS) [Concomitant]
  10. CALCIUM CARBONATE (CALCIUM CARBONATE) [Concomitant]
  11. CRESTOR [Concomitant]

REACTIONS (6)
  - BLOOD CREATININE INCREASED [None]
  - DEPRESSED LEVEL OF CONSCIOUSNESS [None]
  - HYPOGLYCAEMIC COMA [None]
  - PYELONEPHRITIS [None]
  - PYREXIA [None]
  - URINE ANALYSIS ABNORMAL [None]
